FAERS Safety Report 14472418 (Version 2)
Quarter: 2018Q1

REPORT INFORMATION
  Report Type: Spontaneous
  Country: US (occurrence: US)
  Receive Date: 20180201
  Receipt Date: 20180305
  Transmission Date: 20180509
  Serious: No
  Sender: FDA-Public Use
  Company Number: US-B.I. PHARMACEUTICALS,INC./RIDGEFIELD-2018-BI-004760

PATIENT
  Sex: Female

DRUGS (1)
  1. SPIRIVA RESPIMAT [Suspect]
     Active Substance: TIOTROPIUM BROMIDE
     Indication: ASTHMA
     Dosage: ADMINISTRATION CORRECT? NR ACTION(S) TAKEN WITH PRODUCT: NOT REPORTED?THERAPY START DATE: MAY-2017
     Route: 055
     Dates: end: 201712

REACTIONS (2)
  - Product quality issue [Unknown]
  - Asthma [Unknown]

NARRATIVE: CASE EVENT DATE: 2017
